FAERS Safety Report 22946712 (Version 9)
Quarter: 2024Q4

REPORT INFORMATION
  Report Type: Spontaneous
  Country: DE (occurrence: DE)
  Receive Date: 20230915
  Receipt Date: 20241028
  Transmission Date: 20250115
  Serious: Yes (Life-Threatening, Other)
  Sender: SANDOZ
  Company Number: None

PATIENT
  Age: 86 Year
  Sex: Female
  Weight: 56 kg

DRUGS (214)
  1. ASPIRIN [Suspect]
     Active Substance: ASPIRIN
     Indication: Coagulopathy
     Dosage: 100 MILLIGRAM, QD
     Route: 048
     Dates: start: 20000828, end: 20000831
  2. ASPIRIN [Suspect]
     Active Substance: ASPIRIN
     Indication: Product used for unknown indication
     Dosage: 100 MILLIGRAM, QD
     Route: 048
     Dates: start: 20000914, end: 20000917
  3. OMEPRAZOLE MAGNESIUM [Suspect]
     Active Substance: OMEPRAZOLE MAGNESIUM
     Indication: Prophylaxis against gastrointestinal ulcer
     Dosage: 20 MG, QD (DAILY DOSE)
     Route: 048
     Dates: start: 20000820, end: 20000917
  4. ASPIRIN [Suspect]
     Active Substance: ASPIRIN
     Indication: Coagulopathy
     Dosage: 100 MG, QD
     Route: 048
     Dates: start: 20000828, end: 20000831
  5. ASPIRIN [Suspect]
     Active Substance: ASPIRIN
     Indication: Coagulopathy
     Dosage: 100 MG, QD
     Route: 048
     Dates: start: 20000914, end: 20000917
  6. ASPIRIN [Suspect]
     Active Substance: ASPIRIN
     Dosage: 100 MG, QD
     Route: 048
     Dates: start: 20000828, end: 20000831
  7. ASPIRIN [Suspect]
     Active Substance: ASPIRIN
     Dosage: 100 MG, QD
     Route: 048
     Dates: start: 20000914, end: 20000917
  8. CLONIDINE HYDROCHLORIDE [Suspect]
     Active Substance: CLONIDINE HYDROCHLORIDE
     Dosage: 8 MG, QD
     Route: 065
     Dates: start: 20000820, end: 20000914
  9. CLONIDINE HYDROCHLORIDE [Suspect]
     Active Substance: CLONIDINE HYDROCHLORIDE
     Indication: Coronary artery disease
     Dosage: UNK
     Route: 042
     Dates: start: 20000913, end: 20000913
  10. CLONIDINE HYDROCHLORIDE [Suspect]
     Active Substance: CLONIDINE HYDROCHLORIDE
     Indication: Hypertension
     Dosage: UNK
     Route: 042
     Dates: start: 20000913, end: 20000913
  11. CLONIDINE HYDROCHLORIDE [Suspect]
     Active Substance: CLONIDINE HYDROCHLORIDE
     Dosage: UNK
     Route: 042
  12. CLONIDINE HYDROCHLORIDE [Suspect]
     Active Substance: CLONIDINE HYDROCHLORIDE
     Dosage: UNK
     Route: 042
  13. CLONIDINE HYDROCHLORIDE [Suspect]
     Active Substance: CLONIDINE HYDROCHLORIDE
     Dosage: UNK
     Route: 042
  14. CLONIDINE HYDROCHLORIDE [Suspect]
     Active Substance: CLONIDINE HYDROCHLORIDE
     Dosage: UNK
     Route: 042
  15. CLONIDINE HYDROCHLORIDE [Suspect]
     Active Substance: CLONIDINE HYDROCHLORIDE
     Route: 042
  16. CLONIDINE [Suspect]
     Active Substance: CLONIDINE
     Indication: Coronary artery disease
     Dosage: UNK
     Route: 042
     Dates: start: 20000913, end: 20000913
  17. CLONIDINE [Suspect]
     Active Substance: CLONIDINE
     Indication: Hypertension
     Dosage: UNK
     Route: 042
     Dates: start: 20000913, end: 20000913
  18. MOLSIDOMINE [Suspect]
     Active Substance: MOLSIDOMINE
     Indication: Coronary artery disease
     Dosage: 8 MG, QD
     Route: 048
     Dates: start: 20000820, end: 20000914
  19. DILTIAZEM [Suspect]
     Active Substance: DILTIAZEM
     Indication: Product used for unknown indication
     Dosage: UNK
     Route: 042
     Dates: start: 20000913, end: 20000913
  20. PREDNISOLONE [Suspect]
     Active Substance: PREDNISOLONE
     Dosage: 40 MG, QD
     Route: 048
  21. PREDNISOLONE [Suspect]
     Active Substance: PREDNISOLONE
     Dosage: 40 MG, QD
     Route: 048
  22. PREDNISOLONE [Suspect]
     Active Substance: PREDNISOLONE
     Dosage: 40 MG, QD
     Route: 048
  23. PREDNISOLONE [Suspect]
     Active Substance: PREDNISOLONE
     Dosage: 40 MG, QD
     Route: 048
  24. PREDNISOLONE [Suspect]
     Active Substance: PREDNISOLONE
     Dosage: 40 MILLIGRAM, QD
     Route: 048
  25. PREDNISOLONE [Suspect]
     Active Substance: PREDNISOLONE
     Dosage: 40 MILLIGRAM, QD
     Route: 048
  26. PREDNISOLONE [Suspect]
     Active Substance: PREDNISOLONE
     Dosage: 40 MILLIGRAM, QD
     Route: 048
  27. PREDNISOLONE [Suspect]
     Active Substance: PREDNISOLONE
     Indication: Dermatitis bullous
     Dosage: 50 MG, QD
     Route: 048
  28. PREDNISOLONE [Suspect]
     Active Substance: PREDNISOLONE
     Dosage: 50 MILLIGRAM, QD
     Route: 048
  29. PREDNISOLONE [Suspect]
     Active Substance: PREDNISOLONE
     Dosage: 50 MILLIGRAM, QD
     Route: 048
  30. PREDNISOLONE [Suspect]
     Active Substance: PREDNISOLONE
     Dosage: 50 MILLIGRAM, QD
     Route: 048
  31. PREDNISOLONE [Suspect]
     Active Substance: PREDNISOLONE
     Dosage: 50 MILLIGRAM, QD
     Route: 048
  32. PREDNISOLONE [Suspect]
     Active Substance: PREDNISOLONE
     Dosage: 50 MILLIGRAM, QD
     Route: 048
  33. PREDNISOLONE [Suspect]
     Active Substance: PREDNISOLONE
     Dosage: 50 MILLIGRAM, QD
     Route: 048
  34. PREDNISOLONE [Suspect]
     Active Substance: PREDNISOLONE
     Indication: Pemphigoid
     Dosage: 60 MG, QD
     Route: 048
  35. PREDNISOLONE [Suspect]
     Active Substance: PREDNISOLONE
     Dosage: 60 MILLIGRAM, QD
     Route: 048
     Dates: start: 20000820, end: 20000917
  36. PREDNISOLONE [Suspect]
     Active Substance: PREDNISOLONE
     Dosage: 60 MILLIGRAM, QD
     Route: 048
  37. PREDNISOLONE [Suspect]
     Active Substance: PREDNISOLONE
     Dosage: 60 MILLIGRAM, QD
     Route: 048
  38. PREDNISOLONE [Suspect]
     Active Substance: PREDNISOLONE
     Dosage: 60 MILLIGRAM, QD
     Route: 048
  39. PREDNISOLONE [Suspect]
     Active Substance: PREDNISOLONE
     Dosage: 60 MILLIGRAM, QD
     Route: 048
  40. PREDNISOLONE [Suspect]
     Active Substance: PREDNISOLONE
     Dosage: 60 MILLIGRAM, QD
     Route: 048
  41. PREDNISOLONE [Suspect]
     Active Substance: PREDNISOLONE
     Dosage: UNK
     Route: 048
     Dates: start: 20000820, end: 20000917
  42. PREDNISOLONE [Suspect]
     Active Substance: PREDNISOLONE
     Indication: Pemphigoid
     Dosage: UNK
     Route: 048
     Dates: start: 20000820, end: 20000917
  43. PREDNISOLONE [Suspect]
     Active Substance: PREDNISOLONE
     Dosage: 80 MG, QD
     Route: 048
  44. PREDNISOLONE [Suspect]
     Active Substance: PREDNISOLONE
     Dosage: 80 MG, QD
     Route: 048
  45. PREDNISOLONE [Suspect]
     Active Substance: PREDNISOLONE
     Dosage: 80 MG, QD
     Route: 048
  46. PREDNISOLONE [Suspect]
     Active Substance: PREDNISOLONE
     Dosage: 80 MG, QD
     Route: 048
  47. PREDNISOLONE [Suspect]
     Active Substance: PREDNISOLONE
     Dosage: 80 MILLIGRAM, QD
     Route: 048
  48. PREDNISOLONE [Suspect]
     Active Substance: PREDNISOLONE
     Dosage: 80 MILLIGRAM, QD
     Route: 048
  49. PREDNISOLONE [Suspect]
     Active Substance: PREDNISOLONE
     Dosage: 80 MILLIGRAM, QD
     Route: 048
  50. DIAZEPAM [Suspect]
     Active Substance: DIAZEPAM
     Indication: Sedative therapy
     Dosage: UNK
     Route: 042
     Dates: start: 20000913, end: 20000913
  51. DIAZEPAM [Suspect]
     Active Substance: DIAZEPAM
     Indication: Sedative therapy
  52. FENTANYL [Suspect]
     Active Substance: FENTANYL
     Indication: Pain
     Dosage: 1 DOSAGE FORM, Q3D
     Route: 062
     Dates: start: 20000820, end: 20000916
  53. FENTANYL [Suspect]
     Active Substance: FENTANYL
     Dosage: 1 DOSAGE FORM, Q3D
     Route: 062
     Dates: start: 20000820, end: 20000916
  54. FENTANYL [Suspect]
     Active Substance: FENTANYL
     Dosage: 125 MICROGRAM, QH, MICROGRAMS PER INHALATION
     Route: 062
  55. FENTANYL [Suspect]
     Active Substance: FENTANYL
     Dosage: 150 MCG, QH, MICROGRAMS PER INHALATION, 72 QH
     Route: 062
     Dates: start: 20000820, end: 20000916
  56. FENTANYL [Suspect]
     Active Substance: FENTANYL
     Dosage: 150 DOSAGE FORM, Q3D (1 DF)
     Route: 062
     Dates: start: 20000820, end: 20000916
  57. FENTANYL [Suspect]
     Active Substance: FENTANYL
     Dosage: 50 MCG, QH, MICROGRAMS PER INHALATION, 72 QH
     Route: 062
  58. GLYBURIDE [Suspect]
     Active Substance: GLYBURIDE
     Indication: Diabetes mellitus
     Dosage: 3 DOSAGE FORM
     Route: 048
     Dates: start: 20000820, end: 20000917
  59. FRAGMIN [Suspect]
     Active Substance: DALTEPARIN SODIUM
     Indication: Coagulopathy
     Dosage: UNK
     Route: 058
     Dates: start: 20000820, end: 20000917
  60. FRAGMIN [Suspect]
     Active Substance: DALTEPARIN SODIUM
     Dosage: UNK
     Route: 058
  61. FRAGMIN [Suspect]
     Active Substance: DALTEPARIN SODIUM
     Indication: Thrombosis prophylaxis
     Dosage: UNK
     Route: 065
  62. FRAGMIN [Suspect]
     Active Substance: DALTEPARIN SODIUM
     Dosage: UNK
     Route: 065
  63. GLYBURIDE [Suspect]
     Active Substance: GLYBURIDE
     Indication: Diabetes mellitus
     Dosage: 3 DF
     Route: 048
     Dates: start: 20000820, end: 20000917
  64. INSULIN NOS [Suspect]
     Active Substance: INSULIN NOS
     Indication: Diabetes mellitus
     Dosage: SUBCUTANEOUS EXCEPT ON 13 SEP 2000 WHEN GIVEN INTRAVENOUSLY.
     Route: 058
     Dates: start: 20000820, end: 20000917
  65. INSULIN NOS [Suspect]
     Active Substance: INSULIN NOS
     Dosage: UNK
     Route: 065
     Dates: end: 20000917
  66. INSULIN NOS [Suspect]
     Active Substance: INSULIN NOS
     Dosage: UNK (SC EXCEPT ON 13-SEP-2000 WHEN GIVEN IV)
     Route: 042
     Dates: start: 20000913, end: 20000913
  67. LIDOCAINE HYDROCHLORIDE [Suspect]
     Active Substance: LIDOCAINE HYDROCHLORIDE
     Indication: Local anaesthesia
     Dosage: UNK
     Route: 058
     Dates: start: 20000913, end: 20000913
  68. LIDOCAINE HYDROCHLORIDE [Suspect]
     Active Substance: LIDOCAINE HYDROCHLORIDE
     Indication: Product used for unknown indication
  69. NOREPINEPHRINE [Suspect]
     Active Substance: NOREPINEPHRINE\NOREPINEPHRINE BITARTRATE
     Dosage: 8 MG, QD
     Route: 048
     Dates: start: 20000820, end: 20000914
  70. NOREPINEPHRINE [Suspect]
     Active Substance: NOREPINEPHRINE\NOREPINEPHRINE BITARTRATE
     Dosage: 8 MILLIGRAM, QD
     Route: 042
  71. NOREPINEPHRINE [Suspect]
     Active Substance: NOREPINEPHRINE\NOREPINEPHRINE BITARTRATE
     Dosage: 8 MILLIGRAM, QD
     Route: 042
  72. NOREPINEPHRINE [Suspect]
     Active Substance: NOREPINEPHRINE\NOREPINEPHRINE BITARTRATE
     Dosage: 8 MILLIGRAM, QD
     Route: 042
  73. NOREPINEPHRINE [Suspect]
     Active Substance: NOREPINEPHRINE\NOREPINEPHRINE BITARTRATE
     Indication: Local anaesthesia
     Dosage: UNK
     Route: 042
     Dates: start: 20000913, end: 20000913
  74. NOREPINEPHRINE [Suspect]
     Active Substance: NOREPINEPHRINE\NOREPINEPHRINE BITARTRATE
     Indication: Coronary artery disease
     Dosage: UNK,NORADRENALINE
     Route: 042
     Dates: start: 20000913
  75. LORMETAZEPAM [Suspect]
     Active Substance: LORMETAZEPAM
     Indication: Sedation
     Dosage: 2 DOSAGE FORM, QD
     Route: 048
     Dates: start: 20000913, end: 20000913
  76. MOLSIDOMINE [Suspect]
     Active Substance: MOLSIDOMINE
     Indication: Product used for unknown indication
     Dosage: 1 DOSAGE FORM, QD, (1 DF, 1 DOSE DAILY)
     Route: 048
     Dates: start: 20000820, end: 20000914
  77. ISOSORBIDE MONONITRATE [Suspect]
     Active Substance: ISOSORBIDE MONONITRATE
     Indication: Angina pectoris
     Dosage: 1 DOSAGE FORM, QD
     Route: 048
     Dates: start: 20000820, end: 20000917
  78. LORMETAZEPAM [Suspect]
     Active Substance: LORMETAZEPAM
     Dosage: 2 DF (DAILY DOSE), , ORAL2 DF, QD (1 DOSE DAILY SUSPENSION AEROSOL)
     Route: 048
     Dates: start: 20000913, end: 20000913
  79. LORMETAZEPAM [Suspect]
     Active Substance: LORMETAZEPAM
     Dosage: 2 DF, QD
     Route: 065
  80. LORMETAZEPAM [Suspect]
     Active Substance: LORMETAZEPAM
     Dosage: 2 DF, QD
     Route: 065
  81. LORMETAZEPAM [Suspect]
     Active Substance: LORMETAZEPAM
     Indication: Sedation
     Dosage: 2 DF, QD (1 DOSE DAILY SUSPENSION AEROSOL)
     Route: 048
     Dates: start: 20000913, end: 20000913
  82. LORMETAZEPAM [Suspect]
     Active Substance: LORMETAZEPAM
     Dosage: 2 DF, QD (1 DOSE DAILY SUSPENSION AEROSOL)
     Route: 048
     Dates: start: 20000913, end: 20000913
  83. LORMETAZEPAM [Suspect]
     Active Substance: LORMETAZEPAM
     Dosage: 2 DOSAGE FORM, QD
     Route: 065
  84. LORMETAZEPAM [Suspect]
     Active Substance: LORMETAZEPAM
     Dosage: 2 DOSAGE FORM, QD
     Route: 065
  85. LORMETAZEPAM [Suspect]
     Active Substance: LORMETAZEPAM
     Dosage: 2 DOSAGE FORM, QD
     Route: 065
  86. LORMETAZEPAM [Suspect]
     Active Substance: LORMETAZEPAM
     Indication: Sedative therapy
     Dosage: UNK
     Route: 065
  87. LORMETAZEPAM [Suspect]
     Active Substance: LORMETAZEPAM
     Route: 065
  88. LORMETAZEPAM [Suspect]
     Active Substance: LORMETAZEPAM
     Route: 065
  89. LORMETAZEPAM [Suspect]
     Active Substance: LORMETAZEPAM
     Route: 065
  90. LORMETAZEPAM [Suspect]
     Active Substance: LORMETAZEPAM
     Route: 065
  91. NOREPINEPHRINE [Suspect]
     Active Substance: NOREPINEPHRINE\NOREPINEPHRINE BITARTRATE
     Indication: Coronary artery disease
     Dosage: 3 DF
     Route: 042
     Dates: start: 20000913, end: 20000913
  92. NOREPINEPHRINE [Suspect]
     Active Substance: NOREPINEPHRINE\NOREPINEPHRINE BITARTRATE
     Dosage: UNK
     Route: 042
     Dates: start: 20000913, end: 20000913
  93. NORTRIPTYLINE [Suspect]
     Active Substance: NORTRIPTYLINE
     Indication: Coronary artery disease
     Dosage: 75 MG, QD
     Route: 042
     Dates: start: 20000913, end: 20000913
  94. NORTRIPTYLINE [Suspect]
     Active Substance: NORTRIPTYLINE
     Dosage: 75 MILLIGRAM, QD
     Route: 042
     Dates: start: 20000913, end: 20000913
  95. NORTRIPTYLINE [Suspect]
     Active Substance: NORTRIPTYLINE
     Indication: Coronary artery disease
     Route: 042
     Dates: start: 20000913
  96. ACETAMINOPHEN\CAFFEINE\PROPYPHENAZONE [Suspect]
     Active Substance: ACETAMINOPHEN\CAFFEINE\PROPYPHENAZONE
     Indication: General symptom
     Dosage: 20 GTT DROPS, QD (20 GTT, 1 DOSE DAILY)
     Route: 048
     Dates: start: 20000820, end: 20000917
  97. ACETAMINOPHEN\CAFFEINE\PROPYPHENAZONE [Suspect]
     Active Substance: ACETAMINOPHEN\CAFFEINE\PROPYPHENAZONE
     Indication: Pain
     Dosage: UNK
     Route: 048
  98. ACETAMINOPHEN\CAFFEINE\PROPYPHENAZONE [Suspect]
     Active Substance: ACETAMINOPHEN\CAFFEINE\PROPYPHENAZONE
     Dosage: UNK
     Route: 048
     Dates: start: 20000820, end: 20000917
  99. ACETAMINOPHEN\CAFFEINE\PROPYPHENAZONE [Suspect]
     Active Substance: ACETAMINOPHEN\CAFFEINE\PROPYPHENAZONE
     Dosage: UNK
     Route: 048
  100. ACETAMINOPHEN\CAFFEINE\PROPYPHENAZONE [Suspect]
     Active Substance: ACETAMINOPHEN\CAFFEINE\PROPYPHENAZONE
     Indication: General symptom
     Dosage: UNK
     Route: 065
  101. ACETAMINOPHEN\CAFFEINE\PROPYPHENAZONE [Suspect]
     Active Substance: ACETAMINOPHEN\CAFFEINE\PROPYPHENAZONE
     Dosage: UNK
     Route: 065
  102. ACETAMINOPHEN\CAFFEINE\PROPYPHENAZONE [Suspect]
     Active Substance: ACETAMINOPHEN\CAFFEINE\PROPYPHENAZONE
     Dosage: UNK
     Route: 065
  103. OMEPRAZOLE MAGNESIUM [Suspect]
     Active Substance: OMEPRAZOLE MAGNESIUM
     Indication: Prophylaxis against gastrointestinal ulcer
     Dosage: 20 MG, QD
     Route: 048
     Dates: start: 20000820, end: 20000917
  104. OMEPRAZOLE MAGNESIUM [Suspect]
     Active Substance: OMEPRAZOLE MAGNESIUM
     Indication: Prophylaxis against gastrointestinal ulcer
  105. ESTRIOL [Suspect]
     Active Substance: ESTRIOL
     Indication: Vulvovaginal disorder
     Dosage: 1 DF, 1 DOSE DAILY DOSE UNIT: DOSAGE FORM
     Route: 067
     Dates: start: 20000820, end: 20000906
  106. ESTRIOL [Suspect]
     Active Substance: ESTRIOL
     Dosage: 1 DF, 1 DOSE DAILY DOSE UNIT: DOSAGE FORM
     Route: 067
     Dates: start: 20000820, end: 20000906
  107. PLAVIX [Suspect]
     Active Substance: CLOPIDOGREL BISULFATE
     Dosage: 1 DOSAGE FORM, QD (75 MG, 1 DOSE DAILY)
     Route: 048
     Dates: start: 20000913, end: 20000917
  108. PLAVIX [Suspect]
     Active Substance: CLOPIDOGREL BISULFATE
     Indication: Coagulopathy
     Dosage: 4 DF
     Route: 065
  109. PLAVIX [Suspect]
     Active Substance: CLOPIDOGREL BISULFATE
     Indication: Thrombosis prophylaxis
     Dosage: 75 MILLIGRAM, QD
     Route: 048
     Dates: start: 20000913, end: 20000917
  110. PLAVIX [Suspect]
     Active Substance: CLOPIDOGREL BISULFATE
     Indication: Coagulopathy
     Dosage: UNK
     Route: 065
  111. PLAVIX [Suspect]
     Active Substance: CLOPIDOGREL BISULFATE
     Dosage: UNK
     Route: 065
  112. TORSEMIDE [Suspect]
     Active Substance: TORSEMIDE
     Indication: Coronary artery disease
     Dosage: 140 MG
     Route: 065
  113. CLEMASTINE FUMARATE [Suspect]
     Active Substance: CLEMASTINE FUMARATE
     Indication: Pemphigoid
     Dosage: 2 DF, QD
     Route: 048
     Dates: start: 20000820, end: 20000828
  114. CLEMASTINE FUMARATE [Suspect]
     Active Substance: CLEMASTINE FUMARATE
     Indication: Pemphigoid
     Dosage: 2 DOSAGE FORM, QD
     Route: 048
     Dates: start: 20000820, end: 20000828
  115. CLEMASTINE FUMARATE [Suspect]
     Active Substance: CLEMASTINE FUMARATE
     Indication: Pemphigoid
     Dosage: 4 DOSAGE FORM, QD
     Route: 048
     Dates: start: 20000820, end: 20000828
  116. TORSEMIDE [Suspect]
     Active Substance: TORSEMIDE
     Dosage: ORAL
     Route: 065
     Dates: start: 20000820, end: 20000917
  117. TORSEMIDE [Suspect]
     Active Substance: TORSEMIDE
     Dosage: ORAL
     Route: 065
     Dates: start: 20000820, end: 20000917
  118. TORSEMIDE [Suspect]
     Active Substance: TORSEMIDE
     Dosage: 140 MG
     Route: 065
  119. TORSEMIDE [Suspect]
     Active Substance: TORSEMIDE
     Dosage: 140 MG
     Route: 065
  120. TORSEMIDE [Suspect]
     Active Substance: TORSEMIDE
     Dosage: 140 MILLIGRAM
     Route: 065
  121. TORSEMIDE [Suspect]
     Active Substance: TORSEMIDE
     Dosage: 140 MILLIGRAM
     Route: 065
  122. TORSEMIDE [Suspect]
     Active Substance: TORSEMIDE
     Dosage: 140 MILLIGRAM
     Route: 065
  123. TORSEMIDE [Suspect]
     Active Substance: TORSEMIDE
     Indication: Cardiac failure
     Dosage: 5 MG (DAILY DOSE), , ORAL
     Route: 048
     Dates: start: 20000820, end: 20000917
  124. TORSEMIDE [Suspect]
     Active Substance: TORSEMIDE
     Dosage: UNK
     Route: 065
  125. TORSEMIDE [Suspect]
     Active Substance: TORSEMIDE
     Dosage: UNK
     Route: 065
  126. TORSEMIDE [Suspect]
     Active Substance: TORSEMIDE
     Route: 065
  127. VIOXX [Suspect]
     Active Substance: ROFECOXIB
     Indication: Rheumatic disorder
     Dosage: 100 MG, QD
     Route: 048
     Dates: start: 20000914, end: 20000917
  128. VIOXX [Suspect]
     Active Substance: ROFECOXIB
     Dosage: 25 MG, 1 DOSE DAILY
     Route: 048
     Dates: start: 20000907, end: 20000917
  129. VIOXX [Suspect]
     Active Substance: ROFECOXIB
     Indication: Rheumatic disorder
     Dosage: 25 MILLIGRAM, QD (1 DOSE DAILY)
     Route: 048
     Dates: start: 20000907, end: 20000917
  130. VIOXX [Suspect]
     Active Substance: ROFECOXIB
     Dosage: UNK
     Route: 065
  131. VIOXX [Suspect]
     Active Substance: ROFECOXIB
     Dosage: UNK
     Route: 065
  132. VIOXX [Suspect]
     Active Substance: ROFECOXIB
     Dosage: UNK
     Route: 065
  133. VIOXX [Suspect]
     Active Substance: ROFECOXIB
     Dosage: UNK
     Route: 065
  134. VIOXX [Suspect]
     Active Substance: ROFECOXIB
     Dosage: UNK
     Route: 065
  135. VIOXX [Suspect]
     Active Substance: ROFECOXIB
     Dosage: UNK
     Route: 065
  136. VIOXX [Suspect]
     Active Substance: ROFECOXIB
     Route: 065
  137. XYLOCAINE [Suspect]
     Active Substance: LIDOCAINE HYDROCHLORIDE
     Indication: Local anaesthesia
     Dosage: UNK
     Route: 058
     Dates: start: 20000913, end: 20000913
  138. XYLOCAINE [Suspect]
     Active Substance: LIDOCAINE HYDROCHLORIDE
     Dosage: UNK
     Route: 058
     Dates: start: 20000913, end: 20000913
  139. XYLOCAINE [Suspect]
     Active Substance: LIDOCAINE HYDROCHLORIDE
     Dosage: UNK
     Route: 058
  140. XYLOCAINE [Suspect]
     Active Substance: LIDOCAINE HYDROCHLORIDE
     Dosage: UNK
     Route: 058
  141. OMEPRAZOLE [Concomitant]
     Active Substance: OMEPRAZOLE
     Indication: Prophylaxis against gastrointestinal ulcer
     Dosage: 20 MILLIGRAM, QD (1 DOSE DAILY)
     Route: 048
     Dates: start: 20000820, end: 20000917
  142. CALCIUM GLUCONATE [Concomitant]
     Active Substance: CALCIUM GLUCONATE
     Indication: Osteoporosis
     Dosage: 1 DOSAGE FORM, QD (1 DOSE DAILY)
     Route: 048
     Dates: start: 20000820, end: 20000917
  143. CALCIUM CHLORIDE [Concomitant]
     Active Substance: CALCIUM CHLORIDE
     Dosage: UNK
     Route: 048
     Dates: start: 20000820, end: 20000917
  144. CALCIUM CHLORIDE [Concomitant]
     Active Substance: CALCIUM CHLORIDE
     Indication: Fluid retention
     Dosage: UNK
     Route: 042
     Dates: start: 20000913, end: 20000914
  145. CALCIUM CHLORIDE [Concomitant]
     Active Substance: CALCIUM CHLORIDE
     Indication: Electrolyte depletion
     Dosage: UNK
     Route: 065
  146. CALCIUM CHLORIDE [Concomitant]
     Active Substance: CALCIUM CHLORIDE
     Indication: Osteoporosis
     Dosage: UNK
     Route: 065
  147. CALCIUM CHLORIDE [Concomitant]
     Active Substance: CALCIUM CHLORIDE
     Dosage: UNK
     Route: 065
     Dates: start: 20000820, end: 20000917
  148. CALCIUM CHLORIDE [Concomitant]
     Active Substance: CALCIUM CHLORIDE
     Dosage: UNK
     Route: 065
  149. CALCIUM CHLORIDE [Concomitant]
     Active Substance: CALCIUM CHLORIDE
     Dosage: UNK
     Route: 065
  150. CALCIUM CHLORIDE [Concomitant]
     Active Substance: CALCIUM CHLORIDE
     Dosage: UNK
     Route: 065
  151. CALCIUM CHLORIDE [Concomitant]
     Active Substance: CALCIUM CHLORIDE
     Dosage: UNK
     Route: 065
  152. CALCIUM CHLORIDE [Concomitant]
     Active Substance: CALCIUM CHLORIDE
     Dosage: UNK
     Route: 065
  153. CALCIUM CHLORIDE [Concomitant]
     Active Substance: CALCIUM CHLORIDE
     Dosage: UNK
     Route: 065
  154. CALCIUM CHLORIDE [Concomitant]
     Active Substance: CALCIUM CHLORIDE
     Dosage: UNK
     Route: 065
  155. CALCIUM CHLORIDE [Concomitant]
     Active Substance: CALCIUM CHLORIDE
     Dosage: UNK
     Route: 065
  156. CALCIUM CHLORIDE [Concomitant]
     Active Substance: CALCIUM CHLORIDE
     Dosage: UNK
     Route: 065
  157. CALCIUM GLUCONATE [Concomitant]
     Active Substance: CALCIUM GLUCONATE
     Indication: Osteoporosis
     Dosage: 1 DF, 1 DOSE DAILY
     Route: 048
     Dates: start: 20000820, end: 20000917
  158. CALCIUM GLUCONATE [Concomitant]
     Active Substance: CALCIUM GLUCONATE
     Indication: Osteoporosis
     Dosage: 1 DOSAGE FORM, QD (1 DOSE DAILY)
     Route: 048
     Dates: start: 20000820, end: 20000917
  159. CALCIUM GLUCONATE [Concomitant]
     Active Substance: CALCIUM GLUCONATE
     Dosage: 1 DF
     Route: 048
     Dates: start: 20000820, end: 20000917
  160. MOLSIDOMINE [Concomitant]
     Active Substance: MOLSIDOMINE
     Indication: Coronary artery disease
     Dosage: 1 DOSAGE FORM, QD (1 DF, 1 DOSE DAILY)
     Route: 065
     Dates: start: 20000820, end: 20000914
  161. COTRIM [Concomitant]
     Active Substance: SULFAMETHOXAZOLE\TRIMETHOPRIM
     Indication: Urinary tract infection
     Dosage: 1 DF (DAILY DOSE), , ORAL
     Route: 048
     Dates: start: 20000916, end: 20000917
  162. PREDNISONE [Concomitant]
     Active Substance: PREDNISONE
     Indication: Dermatitis bullous
     Dosage: UNK
     Route: 048
     Dates: start: 20000820, end: 20000917
  163. PREDNISOLONE [Concomitant]
     Active Substance: PREDNISOLONE
     Indication: Pemphigoid
     Dosage: 52080 MG, QD
     Route: 048
  164. PREDNISOLONE [Concomitant]
     Active Substance: PREDNISOLONE
     Indication: Dermatitis bullous
     Dosage: UNK
     Route: 048
     Dates: start: 20000820, end: 20000917
  165. PREDNISOLONE [Concomitant]
     Active Substance: PREDNISOLONE
     Dosage: UNK
     Route: 048
     Dates: start: 20000820, end: 20000917
  166. PREDNISOLONE [Concomitant]
     Active Substance: PREDNISOLONE
     Dosage: UNK
     Route: 048
  167. PREDNISOLONE [Concomitant]
     Active Substance: PREDNISOLONE
     Dosage: UNK
     Route: 065
  168. PREDNISOLONE [Concomitant]
     Active Substance: PREDNISOLONE
     Dosage: UNK
     Route: 065
  169. FENTANYL [Concomitant]
     Active Substance: FENTANYL
     Indication: Pain
     Dosage: 1 DF
     Route: 065
     Dates: start: 20000820, end: 20000916
  170. FENTANYL [Concomitant]
     Active Substance: FENTANYL
     Indication: Pain
     Dosage: 1 DF
     Route: 062
     Dates: start: 20000820, end: 20000916
  171. FRAGMIN [Concomitant]
     Active Substance: DALTEPARIN SODIUM
     Indication: Coagulopathy
     Dosage: UNK
     Route: 058
     Dates: start: 20000820, end: 20000917
  172. DALTEPARIN SODIUM [Concomitant]
     Active Substance: DALTEPARIN SODIUM
     Indication: Coagulopathy
     Dosage: UNK
     Route: 065
     Dates: start: 20000820, end: 20000917
  173. DEXTROSE [Concomitant]
     Active Substance: DEXTROSE MONOHYDRATE
     Indication: Cardiovascular disorder
     Dosage: UNK
     Route: 042
     Dates: start: 20000913, end: 20000913
  174. DEXTROSE [Concomitant]
     Active Substance: DEXTROSE MONOHYDRATE
     Dosage: UNK
     Route: 042
     Dates: start: 20000913, end: 20000913
  175. DEXTROSE [Concomitant]
     Active Substance: DEXTROSE MONOHYDRATE
     Indication: Cardiovascular disorder
     Dosage: UNK
     Route: 065
  176. DEXTROSE [Concomitant]
     Active Substance: DEXTROSE MONOHYDRATE
     Indication: Diabetes mellitus
     Dosage: UNK
     Route: 065
  177. DEXTROSE [Concomitant]
     Active Substance: DEXTROSE MONOHYDRATE
     Dosage: UNK
     Route: 065
  178. DEXTROSE [Concomitant]
     Active Substance: DEXTROSE MONOHYDRATE
     Dosage: UNK
     Route: 065
  179. DEXTROSE [Concomitant]
     Active Substance: DEXTROSE MONOHYDRATE
     Dosage: INTRAVENOUS (NOT OTHERWISE SPECIFIED)
     Route: 065
     Dates: start: 20000913, end: 20000913
  180. DEXTROSE [Concomitant]
     Active Substance: DEXTROSE MONOHYDRATE
     Dosage: UNK, QD
     Route: 042
     Dates: start: 20000913, end: 20000913
  181. MOLSIDOMINE [Concomitant]
     Active Substance: MOLSIDOMINE
     Dosage: 1 DOSAGE FORM, QD (1 DF, 1 DOSE DAILY)
     Route: 048
     Dates: start: 20000820, end: 20000914
  182. MOLSIDOMINE [Concomitant]
     Active Substance: MOLSIDOMINE
     Indication: Coagulopathy
     Dosage: 8 MG, QD
     Route: 048
     Dates: start: 20000820, end: 20000914
  183. MOLSIDOMINE [Concomitant]
     Active Substance: MOLSIDOMINE
     Indication: Coronary artery disease
     Dosage: 8 MILLIGRAM, QD
     Route: 048
     Dates: start: 20000820, end: 20000914
  184. MOLSIDOMINE [Concomitant]
     Active Substance: MOLSIDOMINE
     Indication: Thrombosis prophylaxis
     Dosage: UNK
     Route: 058
     Dates: start: 20000820, end: 20000917
  185. ISOSORBIDE MONONITRATE [Concomitant]
     Active Substance: ISOSORBIDE MONONITRATE
     Indication: Angina pectoris
     Dosage: UNK
     Route: 048
     Dates: start: 20000820, end: 20000917
  186. OMEPRAZOLE MAGNESIUM [Concomitant]
     Active Substance: OMEPRAZOLE MAGNESIUM
     Indication: Product used for unknown indication
     Dosage: 20 MG, QD
     Route: 048
     Dates: start: 20000820, end: 20000917
  187. ESTRIOL [Concomitant]
     Active Substance: ESTRIOL
     Indication: Vulvovaginal disorder
     Dosage: 1 DF, QD
     Route: 067
     Dates: start: 20000820, end: 20000906
  188. POTASSIUM CHLORIDE [Concomitant]
     Active Substance: POTASSIUM CHLORIDE
     Indication: Electrolyte depletion
     Dosage: UNK
     Route: 042
     Dates: start: 20000913, end: 20000914
  189. POTASSIUM CHLORIDE [Concomitant]
     Active Substance: POTASSIUM CHLORIDE
     Indication: Diabetes mellitus
     Dosage: UNK
     Route: 065
  190. POTASSIUM CHLORIDE [Concomitant]
     Active Substance: POTASSIUM CHLORIDE
     Indication: Electrolyte depletion
     Dosage: UNK
     Route: 065
  191. POTASSIUM CHLORIDE [Concomitant]
     Active Substance: POTASSIUM CHLORIDE
     Indication: Fluid retention
     Dosage: UNK
     Route: 065
  192. POTASSIUM CHLORIDE [Concomitant]
     Active Substance: POTASSIUM CHLORIDE
     Dosage: UNK
     Route: 065
     Dates: start: 20000820, end: 20000917
  193. POTASSIUM CHLORIDE [Concomitant]
     Active Substance: POTASSIUM CHLORIDE
     Dosage: UNK
     Route: 065
  194. POTASSIUM CHLORIDE [Concomitant]
     Active Substance: POTASSIUM CHLORIDE
     Dosage: UNK
     Route: 065
  195. POTASSIUM CHLORIDE [Concomitant]
     Active Substance: POTASSIUM CHLORIDE
     Dosage: UNK
     Route: 065
  196. POTASSIUM CHLORIDE [Concomitant]
     Active Substance: POTASSIUM CHLORIDE
     Dosage: UNK
     Route: 065
  197. POTASSIUM CHLORIDE [Concomitant]
     Active Substance: POTASSIUM CHLORIDE
     Dosage: UNK
     Route: 065
  198. POTASSIUM CHLORIDE [Concomitant]
     Active Substance: POTASSIUM CHLORIDE
     Dosage: UNK
     Route: 065
  199. POTASSIUM CHLORIDE [Concomitant]
     Active Substance: POTASSIUM CHLORIDE
     Route: 065
  200. POTASSIUM CHLORIDE [Concomitant]
     Active Substance: POTASSIUM CHLORIDE
     Route: 065
  201. POTASSIUM CHLORIDE [Concomitant]
     Active Substance: POTASSIUM CHLORIDE
     Route: 065
  202. RINGERS SOLUTION [Concomitant]
     Active Substance: CALCIUM CHLORIDE\POTASSIUM CHLORIDE\SODIUM CHLORIDE
     Dosage: INTRAVENOUS (NOT OTHERWISE SPECIFIED)
     Route: 065
     Dates: start: 20000913, end: 20000914
  203. RINGERS SOLUTION [Concomitant]
     Active Substance: CALCIUM CHLORIDE\POTASSIUM CHLORIDE\SODIUM CHLORIDE
     Dosage: INTRAVENOUS (NOT OTHERWISE SPECIFIED)
     Route: 065
     Dates: start: 20000913, end: 20000914
  204. RINGERS SOLUTION [Concomitant]
     Active Substance: CALCIUM CHLORIDE\POTASSIUM CHLORIDE\SODIUM CHLORIDE
     Indication: Electrolyte depletion
     Dosage: UNK (BAXTER HEALTHCARE RINGERS) ROUTE OF ADMIN (FREE TEXT): INTRAVENOUS (NOT OTHERWISE SPECIFIED)
     Route: 065
     Dates: start: 20000913, end: 20000914
  205. RINGERS SOLUTION [Concomitant]
     Active Substance: CALCIUM CHLORIDE\POTASSIUM CHLORIDE\SODIUM CHLORIDE
     Indication: Electrolyte depletion
     Dosage: UNK (BAXTER HEALTHCARE RINGERS) ROUTE OF ADMIN (FREE TEXT): INTRAVENOUS (NOT OTHERWISE SPECIFIED)
     Route: 065
     Dates: start: 20000913, end: 20000914
  206. RINGERS SOLUTION [Concomitant]
     Active Substance: CALCIUM CHLORIDE\POTASSIUM CHLORIDE\SODIUM CHLORIDE
     Indication: Fluid retention
     Dosage: UNK (BAXTER HEALTHCARE RINGERS) ROUTE OF ADMIN (FREE TEXT): INTRAVENOUS (NOT OTHERWISE SPECIFIED)
     Route: 065
     Dates: start: 20000913, end: 20000914
  207. RINGERS SOLUTION [Concomitant]
     Active Substance: CALCIUM CHLORIDE\POTASSIUM CHLORIDE\SODIUM CHLORIDE
     Dosage: UNK (BAXTER HEALTHCARE RINGERS) ROUTE OF ADMIN (FREE TEXT): INTRAVENOUS (NOT OTHERWISE SPECIFIED)
     Route: 065
     Dates: start: 20000913, end: 20000914
  208. SODIUM CHLORIDE [Concomitant]
     Active Substance: SODIUM CHLORIDE
     Indication: Electrolyte depletion
     Dosage: UNK
     Route: 042
     Dates: start: 20000913, end: 20000913
  209. SODIUM CHLORIDE [Concomitant]
     Active Substance: SODIUM CHLORIDE
     Indication: Electrolyte depletion
     Dosage: UNK
     Route: 042
     Dates: start: 20000913, end: 20000914
  210. SODIUM CHLORIDE [Concomitant]
     Active Substance: SODIUM CHLORIDE
     Dosage: UNK
     Route: 042
     Dates: start: 20000913, end: 20000914
  211. SULFAMETHOXAZOLE [Concomitant]
     Active Substance: SULFAMETHOXAZOLE
     Indication: Product used for unknown indication
     Dosage: 1 DOSAGE FORM, QD (1 DF, 1 DOSE DAILY)IN THE INITIAL CASE THE ACTIVE COMPONENTS WERE CODED SEPARATEL
     Route: 048
     Dates: start: 20000916, end: 20000917
  212. SULFAMETHOXAZOLE [Concomitant]
     Active Substance: SULFAMETHOXAZOLE
     Indication: Urinary tract infection
     Dosage: UNK
     Route: 065
     Dates: start: 20000916, end: 20000917
  213. SULFAMETHOXAZOLE [Concomitant]
     Active Substance: SULFAMETHOXAZOLE
     Indication: Urinary tract infection
  214. TORSEMIDE [Concomitant]
     Active Substance: TORSEMIDE
     Indication: Cardiac failure
     Dosage: UNK
     Route: 048
     Dates: start: 20000820, end: 20000917

REACTIONS (7)
  - Toxic epidermal necrolysis [Recovered/Resolved]
  - Conjunctivitis [Recovered/Resolved]
  - Mucosal erosion [Recovered/Resolved]
  - Mouth ulceration [Recovered/Resolved]
  - Erythema [Recovered/Resolved]
  - Blister [Recovered/Resolved]
  - Genital erosion [Recovered/Resolved]

NARRATIVE: CASE EVENT DATE: 20000916
